FAERS Safety Report 6545632-X (Version None)
Quarter: 2010Q1

REPORT INFORMATION
  Report Type: 
  Country: None (occurrence: None)
  Receive Date: 20100121
  Receipt Date: 20100108
  Transmission Date: 20100710
  Serious: No
  Sender: FDA-Public Use
  Company Number: US-B.I. PHARMACEUTICALS,INC./RIDGEFIELD-2010-BP-00274BP

PATIENT
  Age: 12 Year
  Sex: Female

DRUGS (1)
  1. CATAPRES-TTS-1 [Suspect]
     Indication: MOVEMENT DISORDER
     Dosage: 0.2 MG
     Route: 061
     Dates: start: 20100101

REACTIONS (1)
  - APPLICATION SITE ERYTHEMA [None]
